FAERS Safety Report 19375026 (Version 1)
Quarter: 2021Q2

REPORT INFORMATION
  Report Type: Spontaneous
  Country: US (occurrence: US)
  Receive Date: 20210604
  Receipt Date: 20210604
  Transmission Date: 20210717
  Serious: No
  Sender: FDA-Public Use
  Company Number: US-009507513-2106USA000568

PATIENT
  Sex: Female
  Weight: 54.7 kg

DRUGS (1)
  1. PRINIVIL [Suspect]
     Active Substance: LISINOPRIL
     Dosage: 1/2 TABLET OF A 10 MG TABLET; BID
     Route: 048

REACTIONS (1)
  - Inappropriate schedule of product administration [Unknown]
